FAERS Safety Report 12502721 (Version 1)
Quarter: 2016Q2

REPORT INFORMATION
  Report Type: Spontaneous
  Country: US (occurrence: US)
  Receive Date: 20160628
  Receipt Date: 20160628
  Transmission Date: 20160815
  Serious: No
  Sender: FDA-Public Use
  Company Number: US-ASTRAZENECA-2016SE42606

PATIENT
  Sex: Male
  Weight: 111.1 kg

DRUGS (4)
  1. LEVAMIR [Concomitant]
  2. METFORMIN [Concomitant]
     Active Substance: METFORMIN HYDROCHLORIDE
  3. NOVOLOG [Concomitant]
     Active Substance: INSULIN ASPART
     Dosage: 10-14 UNITS,IF BLOOD SUGAR OVER 100
  4. BYDUREON [Suspect]
     Active Substance: EXENATIDE
     Indication: TYPE 2 DIABETES MELLITUS
     Route: 058

REACTIONS (5)
  - Intentional product misuse [Recovered/Resolved]
  - Injection site mass [Unknown]
  - Product quality issue [Unknown]
  - Injection site pain [Unknown]
  - Injection site haemorrhage [Unknown]
